FAERS Safety Report 4986683-6 (Version None)
Quarter: 2006Q2

REPORT INFORMATION
  Report Type: 
  Country: None (occurrence: None)
  Receive Date: 20060428
  Receipt Date: 20050915
  Transmission Date: 20061013
  Serious: Yes (Hospitalization, Disabling)
  Sender: FDA-Public Use
  Company Number: US-MERCK-0509USA02210

PATIENT
  Age: 67 Year
  Sex: Male
  Weight: 105 kg

DRUGS (12)
  1. VIOXX [Suspect]
     Indication: MUSCULOSKELETAL DISCOMFORT
     Route: 048
     Dates: start: 20010330, end: 20020120
  2. VIOXX [Suspect]
     Route: 048
     Dates: start: 20010330, end: 20020120
  3. VIOXX [Suspect]
     Indication: ARTHRITIS
     Route: 048
     Dates: start: 20010330, end: 20020120
  4. VIOXX [Suspect]
     Route: 048
     Dates: start: 20010330, end: 20020120
  5. GLUCOPHAGE [Concomitant]
     Route: 065
  6. RANITIDINE [Concomitant]
     Route: 065
  7. LORAZEPAM [Concomitant]
     Route: 065
  8. ZOCOR [Concomitant]
     Route: 065
  9. ISOSORBIDE [Concomitant]
     Route: 065
  10. METOPROLOL [Concomitant]
     Route: 065
  11. ECOTRIN [Concomitant]
     Route: 065
  12. ALLOPURINOL [Concomitant]
     Route: 065

REACTIONS (38)
  - ABDOMINAL PAIN [None]
  - ANGIOPATHY [None]
  - ANORECTAL DISORDER [None]
  - ANXIETY [None]
  - ASTHENIA [None]
  - BLOOD ALBUMIN DECREASED [None]
  - CEREBRAL HAEMORRHAGE [None]
  - CEREBROVASCULAR ACCIDENT [None]
  - CHEST PAIN [None]
  - COLONIC POLYP [None]
  - CONVULSION [None]
  - DEEP VEIN THROMBOSIS [None]
  - DEPRESSION [None]
  - ERECTILE DYSFUNCTION [None]
  - FALL [None]
  - GALLBLADDER DISORDER [None]
  - HAEMORRHAGE [None]
  - HAEMORRHAGE INTRACRANIAL [None]
  - HEADACHE [None]
  - HYPERKALAEMIA [None]
  - INFECTION [None]
  - MALNUTRITION [None]
  - MENINGITIS [None]
  - NEPHROLITHIASIS [None]
  - OBESITY [None]
  - OSTEOARTHRITIS [None]
  - OVERDOSE [None]
  - PAIN [None]
  - PULMONARY EMBOLISM [None]
  - PYREXIA [None]
  - RESPIRATORY FAILURE [None]
  - SIMPLE PARTIAL SEIZURES [None]
  - SLEEP APNOEA SYNDROME [None]
  - SUBDURAL HAEMORRHAGE [None]
  - SUPRAVENTRICULAR TACHYCARDIA [None]
  - TACHYCARDIA [None]
  - TRANSIENT ISCHAEMIC ATTACK [None]
  - URETERIC INJURY [None]
